FAERS Safety Report 7305538-5 (Version None)
Quarter: 2011Q1

REPORT INFORMATION
  Report Type: 
  Country: None (occurrence: None)
  Receive Date: 20110222
  Receipt Date: 20100609
  Transmission Date: 20110831
  Serious: No
  Sender: FDA-Public Use
  Company Number: US-MYLANLABS-2010S1010397

PATIENT
  Age: 34 Year
  Sex: Female

DRUGS (3)
  1. HYDROCODONE BITARTRATE AND ACETAMINOPHEN [Suspect]
     Indication: PAIN
  2. HYDROCODONE BITARTRATE AND ACETAMINOPHEN [Suspect]
  3. ALPRAZOLAM [Suspect]
     Indication: ANXIETY
     Route: 048
     Dates: start: 20060101

REACTIONS (2)
  - SOMNOLENCE [None]
  - DRUG LEVEL ABOVE THERAPEUTIC [None]
